FAERS Safety Report 19889476 (Version 1)
Quarter: 2021Q3

REPORT INFORMATION
  Report Type: Spontaneous
  Country: US (occurrence: US)
  Receive Date: 20210928
  Receipt Date: 20210928
  Transmission Date: 20211014
  Serious: Yes (Hospitalization)
  Sender: FDA-Public Use
  Company Number: None

PATIENT
  Sex: Female
  Weight: 40.7 kg

DRUGS (2)
  1. CISPLATIN. [Suspect]
     Active Substance: CISPLATIN
  2. ALIMTA [Concomitant]
     Active Substance: PEMETREXED DISODIUM

REACTIONS (9)
  - Metastases to lymph nodes [None]
  - Hallucinations, mixed [None]
  - Hip fracture [None]
  - Fall [None]
  - Hepatocellular carcinoma [None]
  - Hip arthroplasty [None]
  - Lung neoplasm malignant [None]
  - Poor peripheral circulation [None]
  - Lung adenocarcinoma [None]

NARRATIVE: CASE EVENT DATE: 20210813
